FAERS Safety Report 7425524-4 (Version None)
Quarter: 2011Q2

REPORT INFORMATION
  Report Type: 
  Country: None (occurrence: None)
  Receive Date: 20110420
  Receipt Date: 20110412
  Transmission Date: 20111010
  Serious: Yes (Hospitalization, Other)
  Sender: FDA-Public Use
  Company Number: ES-MPIJNJ-2011-01525

PATIENT

DRUGS (4)
  1. VELCADE [Suspect]
     Indication: MULTIPLE MYELOMA
     Dosage: 1.3 MG/M2, UNK
     Route: 042
     Dates: start: 20100624
  2. PREDNISONE [Concomitant]
     Indication: MULTIPLE MYELOMA
  3. MELPHALAN [Concomitant]
     Indication: MULTIPLE MYELOMA
  4. VELCADE [Suspect]
     Dosage: 1 MG/M2, UNK
     Route: 042

REACTIONS (1)
  - GLAUCOMA [None]
